FAERS Safety Report 25464546 (Version 1)
Quarter: 2025Q2

REPORT INFORMATION
  Report Type: Spontaneous
  Country: US (occurrence: US)
  Receive Date: 20250621
  Receipt Date: 20250621
  Transmission Date: 20250717
  Serious: No
  Sender: SANOFI AVENTIS
  Company Number: US-SA-2025SA174872

PATIENT
  Sex: Male

DRUGS (16)
  1. DUPIXENT [Suspect]
     Active Substance: DUPILUMAB
     Indication: Chronic obstructive pulmonary disease
     Dosage: 300 MG, QOW
     Route: 058
  2. ALBUTEROL SULFATE [Concomitant]
     Active Substance: ALBUTEROL SULFATE
  3. ALFUZOSIN HYDROCHLORIDE [Concomitant]
     Active Substance: ALFUZOSIN HYDROCHLORIDE
  4. ATORVASTATIN [Concomitant]
     Active Substance: ATORVASTATIN
  5. AZITHROMYCIN [Concomitant]
     Active Substance: AZITHROMYCIN
  6. ELIQUIS [Concomitant]
     Active Substance: APIXABAN
  7. FLUTICASONE [Concomitant]
     Active Substance: FLUTICASONE
  8. FUROSEMIDE [Concomitant]
     Active Substance: FUROSEMIDE
  9. MONTELUKAST [Concomitant]
     Active Substance: MONTELUKAST
  10. PREDNISONE [Concomitant]
     Active Substance: PREDNISONE
  11. QUETIAPINE [Concomitant]
     Active Substance: QUETIAPINE
  12. ROFLUMILAST [Concomitant]
     Active Substance: ROFLUMILAST
  13. THEOPHYLLINE [Concomitant]
     Active Substance: THEOPHYLLINE
  14. TRELEGY ELLIPTA [Concomitant]
     Active Substance: FLUTICASONE FUROATE\UMECLIDINIUM BROMIDE\VILANTEROL TRIFENATATE
  15. ZEPBOUND [Concomitant]
     Active Substance: TIRZEPATIDE
  16. METOPROLOL [Concomitant]
     Active Substance: METOPROLOL

REACTIONS (1)
  - Weight decreased [Not Recovered/Not Resolved]
